FAERS Safety Report 15544037 (Version 1)
Quarter: 2018Q4

REPORT INFORMATION
  Report Type: Spontaneous
  Country: AU (occurrence: AU)
  Receive Date: 20181023
  Receipt Date: 20181023
  Transmission Date: 20190205
  Serious: Yes (Hospitalization, Other)
  Sender: FDA-Public Use
  Company Number: AU-ABBVIE-18K-008-2452459-00

PATIENT
  Sex: Female
  Weight: 54 kg

DRUGS (9)
  1. HUMIRA [Suspect]
     Active Substance: ADALIMUMAB
     Indication: CROHN^S DISEASE
     Route: 058
     Dates: start: 20171110, end: 20180608
  2. OMEGA 3 [Concomitant]
     Active Substance: OMEGA-3 FATTY ACIDS
     Indication: PRODUCT USED FOR UNKNOWN INDICATION
  3. SALBUTAMOL [Concomitant]
     Active Substance: ALBUTEROL
     Indication: DYSPNOEA
     Dosage: 2-6 PUFFS, WHEN REQUIRED
  4. RAMIPRIL. [Concomitant]
     Active Substance: RAMIPRIL
     Indication: HYPERTENSION
     Dosage: ONE TABLET EACH MORNING
     Route: 048
  5. PARACETAMOL/CODEINE [Concomitant]
     Active Substance: ACETAMINOPHEN\CODEINE PHOSPHATE
     Indication: PRODUCT USED FOR UNKNOWN INDICATION
  6. RANITIDINE. [Concomitant]
     Active Substance: RANITIDINE
     Indication: GASTROOESOPHAGEAL REFLUX DISEASE
     Dosage: IN THE MORNING
     Route: 048
  7. PREDNISOLONE. [Concomitant]
     Active Substance: PREDNISOLONE
     Indication: CROHN^S DISEASE
  8. PREDNISOLONE. [Concomitant]
     Active Substance: PREDNISOLONE
     Dosage: DOSE REDUCED
  9. SPIRACTIN (SPIRONOLACTONE) [Concomitant]
     Active Substance: SPIRONOLACTONE
     Indication: HYPERTENSION
     Route: 048

REACTIONS (28)
  - Duodenal stenosis [Unknown]
  - Portal vein thrombosis [Recovering/Resolving]
  - Osteomyelitis [Unknown]
  - Joint range of motion decreased [Unknown]
  - Panniculitis [Unknown]
  - Vomiting [Unknown]
  - Pancreatic cyst [Unknown]
  - Arthritis bacterial [Unknown]
  - Abdominal pain upper [Unknown]
  - Gastrointestinal oedema [Unknown]
  - Weight decreased [Unknown]
  - Joint swelling [Unknown]
  - Crohn^s disease [Unknown]
  - Gastrointestinal wall thickening [Unknown]
  - Skin lesion [Unknown]
  - Arthralgia [Unknown]
  - Abdominal pain upper [Unknown]
  - Pancreatic mass [Unknown]
  - Ulcer [Unknown]
  - Hypomagnesaemia [Unknown]
  - Night sweats [Unknown]
  - Pancreatitis necrotising [Recovering/Resolving]
  - Pyrexia [Unknown]
  - Erythema [Unknown]
  - Lipase increased [Recovering/Resolving]
  - Acquired oesophageal web [Unknown]
  - Arthritis [Unknown]
  - Nausea [Unknown]

NARRATIVE: CASE EVENT DATE: 2018
